FAERS Safety Report 4310182-8 (Version None)
Quarter: 2004Q1

REPORT INFORMATION
  Report Type: 
  Country: None (occurrence: None)
  Receive Date: 20040302
  Receipt Date: 20040302
  Transmission Date: 20041129
  Serious: Yes (Other)
  Sender: FDA-Public Use
  Company Number: None

PATIENT
  Age: 23 Year
  Sex: Male
  Weight: 90.7194 kg

DRUGS (1)
  1. ALBUTEROL [Suspect]
     Dosage: 2 INHALATIONS Q 4 H

REACTIONS (2)
  - DRUG INEFFECTIVE [None]
  - PHARMACEUTICAL PRODUCT COMPLAINT [None]
